FAERS Safety Report 19370059 (Version 5)
Quarter: 2021Q4

REPORT INFORMATION
  Report Type: Spontaneous
  Country: US (occurrence: US)
  Receive Date: 20210603
  Receipt Date: 20211025
  Transmission Date: 20220303
  Serious: Yes (Hospitalization, Other)
  Sender: FDA-Public Use
  Company Number: US-BESINS-2021-13679

PATIENT
  Age: 24 Year
  Sex: Female

DRUGS (4)
  1. ESTRADIOL [Suspect]
     Active Substance: ESTRADIOL
     Indication: Hormone therapy
     Dosage: 4 MILLIGRAM, QD (FORMULATION: TABLET)
     Route: 048
  2. MEDROXYPROGESTERONE [Concomitant]
     Active Substance: MEDROXYPROGESTERONE
     Indication: Hormone therapy
     Dosage: 10 MILLIGRAM, QD
     Route: 048
  3. SPIRONOLACTONE [Concomitant]
     Active Substance: SPIRONOLACTONE
     Indication: Hormone therapy
     Dosage: 100 MILLIGRAM, PER DAY
     Route: 048
  4. OMEPRAZOLE [Concomitant]
     Active Substance: OMEPRAZOLE
     Indication: Gastrooesophageal reflux disease
     Dosage: 40 MILLIGRAM, QD
     Route: 048

REACTIONS (3)
  - Cholelithiasis [Recovered/Resolved]
  - Cholecystitis chronic [Recovered/Resolved]
  - Obstructive pancreatitis [Recovered/Resolved]
